FAERS Safety Report 8544881-9 (Version None)
Quarter: 2012Q3

REPORT INFORMATION
  Report Type: 
  Country: None (occurrence: None)
  Receive Date: 20120727
  Receipt Date: 20070601
  Transmission Date: 20120928
  Serious: Yes (Other)
  Sender: FDA-Public Use
  Company Number: US-ROCHE-1091755

PATIENT
  Sex: Female

DRUGS (7)
  1. SINGULAIR [Concomitant]
  2. PREDNISONE [Concomitant]
  3. SPIRIVA [Concomitant]
  4. THEOPHYLLINE [Concomitant]
  5. ADVAIR HFA [Concomitant]
  6. XOLAIR [Suspect]
     Indication: ASTHMA
  7. XOLAIR [Suspect]
     Indication: ALLERGIC BRONCHITIS

REACTIONS (2)
  - WHEEZING [None]
  - UPPER RESPIRATORY TRACT INFECTION [None]
